FAERS Safety Report 25937774 (Version 1)
Quarter: 2025Q4

REPORT INFORMATION
  Report Type: Report from Study
  Country: US (occurrence: US)
  Receive Date: 20251018
  Receipt Date: 20251018
  Transmission Date: 20260117
  Serious: Yes (Hospitalization, Other)
  Sender: ABBVIE
  Company Number: US-ABBVIE-6506570

PATIENT
  Age: 61 Year
  Sex: Female

DRUGS (2)
  1. SKYRIZI [Suspect]
     Active Substance: RISANKIZUMAB-RZAA
     Indication: Psoriasis
     Dosage: DOSAGE: 150 MG/ML FORM STRENGTH: 150MG/ML?DISCONTINUED IN 2025
     Route: 058
     Dates: start: 202506
  2. SKYRIZI [Suspect]
     Active Substance: RISANKIZUMAB-RZAA
     Dosage: DOSAGE: 150 MG/ML FORM STRENGTH: 150MG/ML
     Route: 058
     Dates: start: 20251014

REACTIONS (5)
  - Fall [Unknown]
  - Burning sensation [Unknown]
  - Dry skin [Unknown]
  - Rib fracture [Unknown]
  - Myocardial infarction [Unknown]

NARRATIVE: CASE EVENT DATE: 20250101
